FAERS Safety Report 15574189 (Version 3)
Quarter: 2019Q1

REPORT INFORMATION
  Report Type: Spontaneous
  Country: JP (occurrence: JP)
  Receive Date: 20181101
  Receipt Date: 20190314
  Transmission Date: 20190417
  Serious: Yes (Other)
  Sender: FDA-Public Use
  Company Number: JP-ROCHE-2207774

PATIENT
  Age: 62 Year
  Sex: Male
  Weight: 53 kg

DRUGS (14)
  1. COLCHICINE. [Concomitant]
     Active Substance: COLCHICINE
     Route: 048
  2. BLOPRESS [Concomitant]
     Active Substance: CANDESARTAN CILEXETIL
     Route: 048
  3. PREDNISOLONE. [Concomitant]
     Active Substance: PREDNISOLONE
     Route: 065
  4. ONEALFA [Concomitant]
     Active Substance: ALFACALCIDOL
     Route: 048
  5. ACTEMRA [Suspect]
     Active Substance: TOCILIZUMAB
     Indication: CRYOPYRIN ASSOCIATED PERIODIC SYNDROME
     Route: 041
     Dates: start: 20140203, end: 20140203
  6. BAKTAR [Concomitant]
     Active Substance: SULFAMETHOXAZOLE\TRIMETHOPRIM
     Route: 048
  7. LOXONIN [Concomitant]
     Active Substance: LOXOPROFEN SODIUM
     Route: 048
  8. ACTEMRA [Suspect]
     Active Substance: TOCILIZUMAB
     Indication: CRYOPYRIN ASSOCIATED PERIODIC SYNDROME
     Route: 058
     Dates: start: 20130708, end: 20140114
  9. TEGRETOL [Concomitant]
     Active Substance: CARBAMAZEPINE
     Route: 048
  10. MUCOSTA [Concomitant]
     Active Substance: REBAMIPIDE
     Route: 048
  11. RINDERON V [Concomitant]
     Active Substance: BETAMETHASONE VALERATE
     Route: 048
  12. BONALON [Concomitant]
     Active Substance: ALENDRONATE SODIUM
     Route: 048
  13. OMEPRAL [Concomitant]
     Active Substance: OMEPRAZOLE
     Route: 048
  14. CRESTOR [Concomitant]
     Active Substance: ROSUVASTATIN CALCIUM
     Route: 048

REACTIONS (3)
  - Anaphylactic reaction [Recovered/Resolved]
  - Intentional product use issue [Unknown]
  - Off label use [Unknown]

NARRATIVE: CASE EVENT DATE: 20140203
